FAERS Safety Report 5366748-X (Version None)
Quarter: 2007Q2

REPORT INFORMATION
  Report Type: 
  Country: None (occurrence: None)
  Receive Date: 20070622
  Receipt Date: 20070308
  Transmission Date: 20071010
  Serious: No
  Sender: FDA-Public Use
  Company Number: A0642886A

PATIENT
  Age: 30 Year
  Sex: Male

DRUGS (1)
  1. THORAZINE [Suspect]
     Indication: DRUG USE FOR UNKNOWN INDICATION
     Route: 065

REACTIONS (2)
  - DRUG INEFFECTIVE [None]
  - PHARMACEUTICAL PRODUCT COMPLAINT [None]
